FAERS Safety Report 5580671-7 (Version None)
Quarter: 2008Q1

REPORT INFORMATION
  Report Type: 
  Country: None (occurrence: None)
  Receive Date: 20080103
  Receipt Date: 20071227
  Transmission Date: 20080703
  Serious: Yes (Death)
  Sender: FDA-Public Use
  Company Number: US-ASTRAZENECA-2007UW24349

PATIENT
  Sex: Male

DRUGS (8)
  1. SEROQUEL [Suspect]
     Indication: PSYCHOTIC DISORDER
     Route: 048
  2. TEGRETOL [Concomitant]
     Indication: CONVULSION
  3. DILAUDID [Concomitant]
  4. EPOGEN [Concomitant]
  5. CYCLOSPORINE [Concomitant]
  6. VALGANCICLOVIR HCL [Concomitant]
  7. SOLU-MEDROL [Concomitant]
  8. BACTRIM [Concomitant]

REACTIONS (4)
  - CARDIO-RESPIRATORY ARREST [None]
  - HYPERCALCAEMIA [None]
  - HYPERPARATHYROIDISM [None]
  - PANCREATITIS [None]
